FAERS Safety Report 6764876-5 (Version None)
Quarter: 2010Q2

REPORT INFORMATION
  Report Type: 
  Country: None (occurrence: None)
  Receive Date: 20100610
  Receipt Date: 20100531
  Transmission Date: 20101027
  Serious: Yes (Hospitalization, Other)
  Sender: FDA-Public Use
  Company Number: CA-ELI_LILLY_AND_COMPANY-CA201004006898

PATIENT
  Age: 76 Year
  Sex: Female

DRUGS (8)
  1. FORTEO [Suspect]
     Indication: OSTEOPOROSIS
     Dosage: 20 UG, DAILY (1/D)
     Dates: start: 20090219
  2. VITAMIN D [Concomitant]
     Dosage: UNK, WEEKLY (1/W)
  3. CALCIUM CARBONATE [Concomitant]
  4. XANAX [Concomitant]
  5. METOPROLOL TARTRATE [Concomitant]
  6. CRESTOR /01588602/ [Concomitant]
  7. FOLIC ACID [Concomitant]
  8. TYLENOL (CAPLET) [Concomitant]
     Dosage: UNK, AS NEEDED

REACTIONS (2)
  - MYOCARDIAL INFARCTION [None]
  - PULMONARY THROMBOSIS [None]
